FAERS Safety Report 12412801 (Version 2)
Quarter: 2016Q2

REPORT INFORMATION
  Report Type: Spontaneous
  Country: US (occurrence: US)
  Receive Date: 20160527
  Receipt Date: 20160615
  Transmission Date: 20160815
  Serious: No
  Sender: FDA-Public Use
  Company Number: US-PFIZER INC-2016255958

PATIENT
  Age: 43 Year
  Sex: Female

DRUGS (7)
  1. PRISTIQ EXTENDED-RELEASE [Suspect]
     Active Substance: DESVENLAFAXINE SUCCINATE
     Dosage: 50 MG, 1X/DAY (ONCE EVERY DAY IN THE MORNING BY MOUTH)
     Route: 048
  2. PRISTIQ EXTENDED-RELEASE [Suspect]
     Active Substance: DESVENLAFAXINE SUCCINATE
     Dosage: 25 MG, 1X/DAY (CUTTING THE TABLET IN HALF)
     Route: 048
     Dates: start: 201605, end: 201605
  3. WELLBUTRIN [Concomitant]
     Active Substance: BUPROPION HYDROCHLORIDE
     Indication: ANXIETY
     Dosage: 300 MG, 1X/DAY
     Route: 048
     Dates: start: 201604
  4. PRISTIQ EXTENDED-RELEASE [Suspect]
     Active Substance: DESVENLAFAXINE SUCCINATE
     Indication: PREMENSTRUAL SYNDROME
     Dosage: 50 MG, 1X/DAY (ONCE EVERY DAY IN THE MORNING BY MOUTH)
     Route: 048
     Dates: start: 2015, end: 2015
  5. PRISTIQ EXTENDED-RELEASE [Suspect]
     Active Substance: DESVENLAFAXINE SUCCINATE
     Dosage: LITTLE CRUMBS
     Route: 048
     Dates: start: 201605, end: 20160507
  6. PRISTIQ EXTENDED-RELEASE [Suspect]
     Active Substance: DESVENLAFAXINE SUCCINATE
     Dosage: 12.5 MG, 1X/DAY (INTO QUARTERS)
     Route: 048
     Dates: start: 201605, end: 201605
  7. PRISTIQ EXTENDED-RELEASE [Suspect]
     Active Substance: DESVENLAFAXINE SUCCINATE
     Indication: ANXIETY
     Dosage: 100 MG, 1X/DAY
     Route: 048
     Dates: start: 201508

REACTIONS (14)
  - Drug withdrawal syndrome [Unknown]
  - Vomiting [Recovered/Resolved]
  - Malaise [Not Recovered/Not Resolved]
  - Fatigue [Unknown]
  - Dizziness [Unknown]
  - Vertigo [Not Recovered/Not Resolved]
  - Chills [Not Recovered/Not Resolved]
  - Intentional product misuse [Recovered/Resolved]
  - Palpitations [Unknown]
  - Activities of daily living impaired [Unknown]
  - Cerebral disorder [Unknown]
  - Weight increased [Not Recovered/Not Resolved]
  - Peripheral coldness [Unknown]
  - Headache [Not Recovered/Not Resolved]

NARRATIVE: CASE EVENT DATE: 201508
